FAERS Safety Report 10385625 (Version 1)
Quarter: 2014Q3

REPORT INFORMATION
  Report Type: Spontaneous
  Country: GB (occurrence: None)
  Receive Date: 20140812
  Receipt Date: 20140812
  Transmission Date: 20150326
  Serious: Yes (Other)
  Sender: FDA-Public Use
  Company Number: ABR_01757_2014

PATIENT
  Age: 25 Year
  Sex: Female
  Weight: 110.7 kg

DRUGS (3)
  1. ITRACONAZOLE. [Concomitant]
     Active Substance: ITRACONAZOLE
  2. DESOGESTREL [Concomitant]
     Active Substance: DESOGESTREL
  3. ERYTHROMYCIN. [Suspect]
     Active Substance: ERYTHROMYCIN
     Indication: GASTROINTESTINAL DISORDER
     Route: 048
     Dates: start: 20140713, end: 20140714

REACTIONS (4)
  - Abdominal pain upper [None]
  - Diarrhoea [None]
  - Headache [None]
  - Nausea [None]

NARRATIVE: CASE EVENT DATE: 20140714
